FAERS Safety Report 7420448-0 (Version None)
Quarter: 2011Q2

REPORT INFORMATION
  Report Type: 
  Country: None (occurrence: None)
  Receive Date: 20110418
  Receipt Date: 20110415
  Transmission Date: 20111010
  Serious: Yes (Hospitalization)
  Sender: FDA-Public Use
  Company Number: US-PFIZER INC-2011080091

PATIENT
  Sex: Male

DRUGS (1)
  1. ARGATROBAN [Suspect]
     Dosage: TITRATING UP DOSE
     Route: 042
     Dates: start: 20110409

REACTIONS (1)
  - ACTIVATED PARTIAL THROMBOPLASTIN TIME SHORTENED [None]
